FAERS Safety Report 7618493-5 (Version None)
Quarter: 2011Q3

REPORT INFORMATION
  Report Type: 
  Country: None (occurrence: None)
  Receive Date: 20110718
  Receipt Date: 20110714
  Transmission Date: 20111222
  Serious: No
  Sender: FDA-Public Use
  Company Number: US-PFIZER INC-2011159736

PATIENT
  Sex: Female

DRUGS (4)
  1. PACERONE [Suspect]
     Indication: PALPITATIONS
     Dosage: 100 MG, 1X/DAY
     Route: 048
  2. TOPROL-XL [Concomitant]
     Dosage: UNK
  3. LIPITOR [Suspect]
     Indication: BLOOD CHOLESTEROL INCREASED
     Dosage: UNK
     Route: 048
  4. LISINOPRIL [Concomitant]
     Dosage: UNK

REACTIONS (2)
  - RENAL FUNCTION TEST ABNORMAL [None]
  - DRUG INTERACTION [None]
